FAERS Safety Report 16395713 (Version 2)
Quarter: 2019Q2

REPORT INFORMATION
  Report Type: Spontaneous
  Country: BR (occurrence: BR)
  Receive Date: 20190605
  Receipt Date: 20190624
  Transmission Date: 20190711
  Serious: Yes (Hospitalization, Other)
  Sender: FDA-Public Use
  Company Number: BR-GLAXOSMITHKLINE-BR2019GSK089291

PATIENT
  Sex: Female
  Weight: 67 kg

DRUGS (2)
  1. CELECOXIB. [Suspect]
     Active Substance: CELECOXIB
     Indication: PRODUCT USED FOR UNKNOWN INDICATION
     Dosage: UNK
  2. NUCALA [Suspect]
     Active Substance: MEPOLIZUMAB
     Indication: ASTHMA
     Dosage: 100 MG, Z(MONTHLY)
     Route: 042
     Dates: start: 20190415

REACTIONS (22)
  - Neck pain [Unknown]
  - Pruritus [Unknown]
  - Peripheral swelling [Unknown]
  - Exostosis [Unknown]
  - Arthritis infective [Unknown]
  - Tinnitus [Unknown]
  - Visual impairment [Unknown]
  - Paraesthesia [Unknown]
  - Gait disturbance [Unknown]
  - Malaise [Unknown]
  - Pain in extremity [Unknown]
  - Vascular pain [Unknown]
  - Off label use [Unknown]
  - Disorientation [Unknown]
  - Rhinitis [Unknown]
  - Ligament sprain [Unknown]
  - Pain [Unknown]
  - Nausea [Unknown]
  - Dizziness [Unknown]
  - Hypotonia [Unknown]
  - Cough [Unknown]
  - Constipation [Unknown]
